FAERS Safety Report 15290806 (Version 9)
Quarter: 2019Q4

REPORT INFORMATION
  Report Type: Spontaneous
  Country: AU (occurrence: AU)
  Receive Date: 20180817
  Receipt Date: 20191210
  Transmission Date: 20200122
  Serious: Yes (Hospitalization, Other)
  Sender: FDA-Public Use
  Company Number: AU-PFIZER INC-2018326266

PATIENT
  Age: 29 Year
  Sex: Male
  Weight: 82 kg

DRUGS (1)
  1. CHAMPIX [Suspect]
     Active Substance: VARENICLINE TARTRATE
     Indication: SMOKING CESSATION THERAPY
     Dosage: 1 DF, UNK
     Route: 048
     Dates: start: 20110321, end: 20110401

REACTIONS (36)
  - Heart rate increased [Unknown]
  - Agitation [Unknown]
  - Drug ineffective [Unknown]
  - Hallucination, auditory [Recovering/Resolving]
  - Mental disorder [Recovering/Resolving]
  - Thinking abnormal [Recovering/Resolving]
  - Stress [Unknown]
  - Paranoia [Recovering/Resolving]
  - Blood pressure increased [Unknown]
  - Hypersexuality [Unknown]
  - Emotional distress [Unknown]
  - Traumatic shock [Unknown]
  - Drug hypersensitivity [Unknown]
  - Psychiatric symptom [Recovering/Resolving]
  - Delusion [Recovered/Resolved]
  - Restlessness [Unknown]
  - Weight fluctuation [Unknown]
  - Mania [Recovering/Resolving]
  - Bipolar disorder [Unknown]
  - Dry mouth [Unknown]
  - Aggression [Recovering/Resolving]
  - Violence-related symptom [Unknown]
  - Depressed mood [Recovered/Resolved]
  - Anxiety [Unknown]
  - Impulse-control disorder [Unknown]
  - Extrasystoles [Unknown]
  - Psychosexual disorder [Unknown]
  - Disturbance in attention [Recovering/Resolving]
  - Tachyphrenia [Recovering/Resolving]
  - Aphasia [Recovering/Resolving]
  - Confusional state [Recovering/Resolving]
  - Decreased appetite [Recovering/Resolving]
  - Insomnia [Unknown]
  - Fall [Unknown]
  - Tremor [Unknown]
  - Memory impairment [Unknown]

NARRATIVE: CASE EVENT DATE: 2011
